FAERS Safety Report 9069709 (Version 1)
Quarter: 2013Q1

REPORT INFORMATION
  Report Type: Spontaneous
  Country: AT (occurrence: AT)
  Receive Date: 20130215
  Receipt Date: 20130215
  Transmission Date: 20140127
  Serious: Yes (Life-Threatening, Hospitalization)
  Sender: FDA-Public Use
  Company Number: AT-B.I. PHARMACEUTICALS,INC./RIDGEFIELD-2013-AP-00118AP

PATIENT
  Age: 82 Year
  Sex: Female
  Weight: 67 kg

DRUGS (1)
  1. PRADAXA [Suspect]
     Indication: ATRIAL FIBRILLATION
     Dosage: 220 MG
     Dates: start: 201204, end: 201211

REACTIONS (4)
  - Vasculitis necrotising [Recovered/Resolved]
  - Renal failure acute [Recovered/Resolved]
  - Arthritis [Unknown]
  - Gastroenteritis [Unknown]
